FAERS Safety Report 9378563 (Version 3)
Quarter: 2013Q3

REPORT INFORMATION
  Report Type: Spontaneous
  Country: JP (occurrence: JP)
  Receive Date: 20130702
  Receipt Date: 20130826
  Transmission Date: 20140515
  Serious: Yes (Death, Other)
  Sender: FDA-Public Use
  Company Number: JP-ROCHE-1243410

PATIENT
  Age: 75 Year
  Sex: Female

DRUGS (7)
  1. DENOSINE [Suspect]
     Indication: CYTOMEGALOVIRUS TEST POSITIVE
     Route: 042
     Dates: start: 20120512
  2. REMICADE [Suspect]
     Indication: COLITIS ULCERATIVE
     Route: 042
  3. TACROLIMUS HYDRATE [Suspect]
     Indication: COLITIS ULCERATIVE
     Route: 048
  4. PREDNISOLONE [Suspect]
     Indication: COLITIS ULCERATIVE
     Route: 042
  5. MESALAZINE [Concomitant]
     Route: 048
  6. BETAMETHASONE [Concomitant]
     Route: 054
  7. PREDNISOLONE [Concomitant]
     Route: 048

REACTIONS (4)
  - Pneumocystis jirovecii pneumonia [Fatal]
  - Pyrexia [Unknown]
  - Malaise [Unknown]
  - Decreased appetite [Unknown]
